FAERS Safety Report 24043912 (Version 1)
Quarter: 2024Q3

REPORT INFORMATION
  Report Type: Spontaneous
  Country: JP (occurrence: JP)
  Receive Date: 20240703
  Receipt Date: 20240703
  Transmission Date: 20241016
  Serious: Yes (Other)
  Sender: ROCHE
  Company Number: JP-CHUGAI-2024019901AA

PATIENT
  Age: 71 Year
  Sex: Female
  Weight: 45 kg

DRUGS (4)
  1. PHESGO [Suspect]
     Active Substance: HYALURONIDASE-ZZXF\PERTUZUMAB\TRASTUZUMAB
     Indication: Breast cancer
     Dosage: 10 MILLILITER, ONCE/3WEEKS
     Route: 050
     Dates: start: 20240412, end: 20240412
  2. TS-1 [Concomitant]
     Active Substance: GIMERACIL\OTERACIL POTASSIUM\TEGAFUR
     Indication: Breast cancer
     Dosage: 40 MILLIGRAM,TWO-WEEK ADMINISTRATION FOLLOWED BY ONE-WEEK OFF
     Route: 050
     Dates: start: 20230819, end: 20240606
  3. BIO-THREE [Concomitant]
     Active Substance: HERBALS
     Dosage: 1 UNK
     Route: 050
     Dates: start: 20230819
  4. GASTER [Concomitant]
     Active Substance: FAMOTIDINE
     Dosage: 20 MICROGRAM
     Route: 050
     Dates: start: 20230819

REACTIONS (2)
  - Myalgia [Recovering/Resolving]
  - Gait disturbance [Recovered/Resolved]

NARRATIVE: CASE EVENT DATE: 20240412
